FAERS Safety Report 18866613 (Version 1)
Quarter: 2021Q1

REPORT INFORMATION
  Report Type: Report from Study
  Country: US (occurrence: US)
  Receive Date: 20210209
  Receipt Date: 20210209
  Transmission Date: 20210420
  Serious: Yes (Other)
  Sender: FDA-Public Use
  Company Number: NVSC2021US021866

PATIENT
  Age: 59 Year
  Sex: Male

DRUGS (3)
  1. CARVEDILOL. [Concomitant]
     Active Substance: CARVEDILOL
     Indication: PRODUCT USED FOR UNKNOWN INDICATION
     Route: 065
  2. ENTRESTO [Suspect]
     Active Substance: SACUBITRIL\VALSARTAN
     Indication: PRODUCT USED FOR UNKNOWN INDICATION
     Dosage: UNK UNK, BID
     Route: 048
     Dates: end: 2020
  3. ENTRESTO [Suspect]
     Active Substance: SACUBITRIL\VALSARTAN
     Dosage: UNK
     Route: 065
     Dates: start: 20210127

REACTIONS (15)
  - Blood uric acid increased [Unknown]
  - Thrombosis [Unknown]
  - Hyperhidrosis [Unknown]
  - Dyspnoea [Unknown]
  - Blood sodium decreased [Unknown]
  - Insomnia [Unknown]
  - Pulmonary oedema [Unknown]
  - Thirst [Unknown]
  - Swelling [Unknown]
  - Fluid retention [Unknown]
  - Feeling abnormal [Unknown]
  - Gout [Unknown]
  - Cardiac failure [Unknown]
  - Dehydration [Unknown]
  - Decreased activity [Unknown]
